FAERS Safety Report 22349750 (Version 1)
Quarter: 2023Q2

REPORT INFORMATION
  Report Type: Spontaneous
  Country: HR (occurrence: HR)
  Receive Date: 20230522
  Receipt Date: 20230522
  Transmission Date: 20230722
  Serious: Yes (Other)
  Sender: FDA-Public Use
  Company Number: HR-009507513-2305HRV004990

PATIENT
  Age: 70 Year
  Sex: Male

DRUGS (3)
  1. ZERBAXA [Suspect]
     Active Substance: CEFTOLOZANE SULFATE\TAZOBACTAM SODIUM
     Indication: Antibiotic therapy
     Dosage: 3X2/1 G OVER 12 DAYS
     Route: 042
  2. LINEZOLID [Concomitant]
     Active Substance: LINEZOLID
     Indication: Antibiotic therapy
     Dosage: 2X600 MG OVER 12 DAYS
     Route: 042
  3. OXYGEN [Concomitant]
     Active Substance: OXYGEN
     Dosage: UNK

REACTIONS (3)
  - Hypoventilation [Unknown]
  - Atelectasis [Unknown]
  - C-reactive protein increased [Unknown]
